FAERS Safety Report 5925129-8 (Version None)
Quarter: 2008Q4

REPORT INFORMATION
  Report Type: 
  Country: None (occurrence: None)
  Receive Date: 20081021
  Receipt Date: 20081015
  Transmission Date: 20090506
  Serious: Yes (Other)
  Sender: FDA-Public Use
  Company Number: BE-AVENTIS-200815609EU

PATIENT
  Age: 58 Year
  Sex: Male

DRUGS (2)
  1. CLEXANE [Suspect]
     Dosage: DOSE: UNK
     Route: 040
     Dates: start: 20081013, end: 20081013
  2. ANTITHROMBOTIC AGENTS [Concomitant]
     Indication: ATRIAL FIBRILLATION
     Route: 048

REACTIONS (2)
  - CATHETER THROMBOSIS [None]
  - HEMIPLEGIA [None]
